FAERS Safety Report 4914232-7 (Version None)
Quarter: 2006Q1

REPORT INFORMATION
  Report Type: 
  Country: None (occurrence: None)
  Receive Date: 20060213
  Receipt Date: 20060131
  Transmission Date: 20060701
  Serious: Yes (Death)
  Sender: FDA-Public Use
  Company Number: 8014752

PATIENT
  Sex: Female

DRUGS (1)
  1. THEOPHYLLINE [Suspect]
     Indication: APNOEA

REACTIONS (20)
  - ATRIOVENTRICULAR BLOCK COMPLETE [None]
  - BLOOD PRESSURE DECREASED [None]
  - BRADYCARDIA FOETAL [None]
  - CAESAREAN SECTION [None]
  - CARDIOMYOPATHY NEONATAL [None]
  - DRUG EXPOSURE DURING PREGNANCY [None]
  - ELECTROCARDIOGRAM ST-T SEGMENT DEPRESSION [None]
  - ENDOCARDIAL FIBROELASTOSIS [None]
  - ENDOCARDIAL FIBROSIS [None]
  - ERYTHEMA [None]
  - HEART BLOCK CONGENITAL [None]
  - INFANTILE APNOEIC ATTACK [None]
  - INTRAVENTRICULAR HAEMORRHAGE NEONATAL [None]
  - LATE METABOLIC ACIDOSIS OF NEWBORN [None]
  - MATERNAL CONDITION AFFECTING FOETUS [None]
  - NEONATAL ANURIA [None]
  - NEONATAL DISORDER [None]
  - NEONATAL TACHYCARDIA [None]
  - PERICARDIAL EFFUSION [None]
  - VENTRICULAR TACHYCARDIA [None]
